FAERS Safety Report 16225613 (Version 2)
Quarter: 2019Q2

REPORT INFORMATION
  Report Type: Other
  Country: DE (occurrence: DE)
  Receive Date: 20190422
  Receipt Date: 20190523
  Transmission Date: 20190711
  Serious: Yes (Other)
  Sender: FDA-Public Use
  Company Number: DE-CELLTRION INC.-2019DE020539

PATIENT

DRUGS (6)
  1. VALDOXAN [Concomitant]
     Active Substance: AGOMELATINE
     Dosage: 25 MG, EVERY DAY
     Route: 048
  2. METFORMIN [Concomitant]
     Active Substance: METFORMIN HYDROCHLORIDE
     Dosage: 2000 MG, EVERY DAY
     Route: 065
  3. SATIVEX [Concomitant]
     Active Substance: NABIXIMOLS
     Dosage: 4, EVERY DAY
     Route: 065
  4. RITUXIMAB (UNKNOWN) [Suspect]
     Active Substance: RITUXIMAB
     Indication: MULTIPLE SCLEROSIS
     Dosage: 500 MG, EVERY 6 MONTHS
     Route: 042
     Dates: start: 2010
  5. NITROXOLINE [Concomitant]
     Active Substance: NITROXOLINE
     Dosage: 250 MG, EVERY 2 DAYS
     Route: 048
  6. DEKRISTOL [Concomitant]
     Active Substance: CHOLECALCIFEROL
     Dosage: 20000 IU, 1/WEEK
     Route: 048

REACTIONS (4)
  - Intentional product use issue [Unknown]
  - Off label use [Unknown]
  - Cardiomyopathy [Unknown]
  - Electrocardiogram QT prolonged [Unknown]
